FAERS Safety Report 6209023-3 (Version None)
Quarter: 2009Q2

REPORT INFORMATION
  Report Type: 
  Country: None (occurrence: None)
  Receive Date: 20090529
  Receipt Date: 20090522
  Transmission Date: 20091009
  Serious: Yes (Hospitalization)
  Sender: FDA-Public Use
  Company Number: PHHY2009MX20093

PATIENT
  Age: 59 Year
  Sex: Female

DRUGS (8)
  1. ACLASTA [Suspect]
     Indication: OSTEOPOROSIS
     Dosage: 5 MG/100 ML
     Dates: start: 20070901
  2. ANGIOTROFIN (DILTIAZEM HYDROCHLORIDE) [Concomitant]
  3. ACETYLSALICYLIC ACID SRT [Concomitant]
  4. LIPITOR [Concomitant]
  5. MELOXICAM [Concomitant]
  6. METHOCARBAMOL [Concomitant]
  7. ACETAMINOPHEN [Concomitant]
  8. GLUCOSAMINE [Concomitant]

REACTIONS (2)
  - CARDIAC FAILURE [None]
  - CATHETERISATION CARDIAC [None]
